FAERS Safety Report 22145969 (Version 4)
Quarter: 2023Q2

REPORT INFORMATION
  Report Type: Spontaneous
  Country: EG (occurrence: EG)
  Receive Date: 20230328
  Receipt Date: 20230608
  Transmission Date: 20230722
  Serious: Yes (Other)
  Sender: FDA-Public Use
  Company Number: EG-BAYER-2023A035899

PATIENT
  Age: 58 Year
  Sex: Male

DRUGS (1)
  1. EYLEA [Suspect]
     Active Substance: AFLIBERCEPT
     Indication: Aqueous humour leakage
     Dosage: 0.1 ML, ONCE, SOLUTION FOR INJECTION (STRENGTH: 40 MG/ML)
     Route: 031
     Dates: start: 20230228, end: 20230228

REACTIONS (2)
  - Vitrectomy [Not Recovered/Not Resolved]
  - Endophthalmitis [Recovered/Resolved]

NARRATIVE: CASE EVENT DATE: 20230301
